FAERS Safety Report 5468757-9 (Version None)
Quarter: 2007Q3

REPORT INFORMATION
  Report Type: 
  Country: None (occurrence: None)
  Receive Date: 20070926
  Receipt Date: 20070914
  Transmission Date: 20080115
  Serious: Yes (Other)
  Sender: FDA-Public Use
  Company Number: ES-PFIZER INC-2007029043

PATIENT
  Sex: Female

DRUGS (5)
  1. CHAMPIX [Suspect]
     Indication: SMOKING CESSATION THERAPY
     Route: 048
     Dates: start: 20070101, end: 20070101
  2. TROMALYT [Concomitant]
     Route: 048
  3. PLUSVENT [Concomitant]
     Route: 055
     Dates: start: 20050101
  4. ALPRAZOLAM [Concomitant]
     Route: 048
     Dates: start: 20030101
  5. SIMVASTATIN [Concomitant]
     Route: 048
     Dates: start: 20070201

REACTIONS (1)
  - HAEMOPTYSIS [None]
